FAERS Safety Report 21359697 (Version 1)
Quarter: 2022Q3

REPORT INFORMATION
  Report Type: Spontaneous
  Country: US (occurrence: US)
  Receive Date: 20220921
  Receipt Date: 20220921
  Transmission Date: 20221027
  Serious: Yes (Other)
  Sender: FDA-Public Use
  Company Number: US-PFIZER INC-202201171380

PATIENT
  Age: 71 Year
  Sex: Male
  Weight: 86.64 kg

DRUGS (6)
  1. PAXLOVID [Suspect]
     Active Substance: NIRMATRELVIR\RITONAVIR
     Indication: COVID-19 treatment
     Dosage: 3 DF, 2X/DAY
     Dates: start: 20220914
  2. AMLODIPINE [Concomitant]
     Active Substance: AMLODIPINE BESYLATE
     Dosage: UNK
  3. HYDRALAZINE [Concomitant]
     Active Substance: HYDRALAZINE HYDROCHLORIDE
     Dosage: UNK
  4. METOPROLOL [Concomitant]
     Active Substance: METOPROLOL
     Dosage: UNK
  5. LANTUS [Concomitant]
     Active Substance: INSULIN GLARGINE
     Dosage: I TAKE INSULIN ALSO TWO SHOT A DAY. I TAKE LANTUS AND I ALSO TAKE HUMALOG
  6. HUMALOG [Concomitant]
     Active Substance: INSULIN LISPRO
     Dosage: I TAKE INSULIN ALSO TWO SHOT A DAY. I TAKE LANTUS AND I ALSO TAKE HUMALOG

REACTIONS (1)
  - Blood glucose increased [Unknown]
